FAERS Safety Report 18289296 (Version 1)
Quarter: 2020Q3

REPORT INFORMATION
  Report Type: Spontaneous
  Country: FR (occurrence: FR)
  Receive Date: 20200921
  Receipt Date: 20200921
  Transmission Date: 20201103
  Serious: Yes (Hospitalization, Other)
  Sender: FDA-Public Use
  Company Number: FR-009507513-2009FRA007145

PATIENT
  Age: 57 Year
  Sex: Male

DRUGS (1)
  1. KEYTRUDA [Suspect]
     Active Substance: PEMBROLIZUMAB
     Indication: MALIGNANT NEOPLASM OF THYMUS
     Dosage: UNK
     Dates: start: 2018, end: 2020

REACTIONS (6)
  - Infection [Unknown]
  - Fungal infection [Unknown]
  - Productive cough [Unknown]
  - Renal failure [Unknown]
  - Off label use [Unknown]
  - Respiratory failure [Unknown]

NARRATIVE: CASE EVENT DATE: 201912
